FAERS Safety Report 6717966-7 (Version None)
Quarter: 2010Q2

REPORT INFORMATION
  Report Type: 
  Country: None (occurrence: None)
  Receive Date: 20100510
  Receipt Date: 20100429
  Transmission Date: 20101027
  Serious: Yes (Other)
  Sender: FDA-Public Use
  Company Number: PHHY2010CA12304

PATIENT
  Age: 81 Year
  Sex: Female

DRUGS (1)
  1. EXELON [Suspect]
     Dosage: 9.5 MG, QD
     Route: 062

REACTIONS (7)
  - CONTUSION [None]
  - ECCHYMOSIS [None]
  - ERYTHEMA [None]
  - HYPERSENSITIVITY [None]
  - SKIN HAEMORRHAGE [None]
  - SKIN IRRITATION [None]
  - SKIN PLAQUE [None]
